FAERS Safety Report 8412822-0 (Version None)
Quarter: 2012Q2

REPORT INFORMATION
  Report Type: 
  Country: None (occurrence: None)
  Receive Date: 20120605
  Receipt Date: 20120525
  Transmission Date: 20120825
  Serious: Yes (Hospitalization)
  Sender: FDA-Public Use
  Company Number: JP-VERTEX PHARMACEUTICALS INC.-AE-2012-007908

PATIENT
  Age: 43 Year
  Sex: Male

DRUGS (3)
  1. TELAVIC (TELAPREVIR) [Suspect]
     Indication: HEPATITIS C
     Route: 048
     Dates: start: 20120509
  2. REBETOL [Concomitant]
     Route: 048
     Dates: start: 20120509
  3. PEG-INTRON [Concomitant]
     Route: 058
     Dates: start: 20120509

REACTIONS (2)
  - RASH [None]
  - BLOOD CREATININE INCREASED [None]
